FAERS Safety Report 9243044 (Version 2)
Quarter: 2013Q2

REPORT INFORMATION
  Report Type: Spontaneous
  Country: CH (occurrence: CH)
  Receive Date: 20130419
  Receipt Date: 20130606
  Transmission Date: 20140414
  Serious: Yes (Other)
  Sender: FDA-Public Use
  Company Number: CH-ELI_LILLY_AND_COMPANY-CH201304005345

PATIENT
  Age: 54 Year
  Sex: Male
  Weight: 120 kg

DRUGS (2)
  1. ZYPREXA [Suspect]
     Indication: MENTAL DISORDER
     Dosage: 10 MG, QD
  2. ZYPREXA [Suspect]
     Dosage: 20 MG, QD

REACTIONS (6)
  - Hepatic cirrhosis [Unknown]
  - Diabetes mellitus inadequate control [Unknown]
  - Blood alkaline phosphatase increased [Not Recovered/Not Resolved]
  - Gamma-glutamyltransferase increased [Not Recovered/Not Resolved]
  - Transaminases increased [Not Recovered/Not Resolved]
  - Obesity [Unknown]
